FAERS Safety Report 24739022 (Version 1)
Quarter: 2024Q4

REPORT INFORMATION
  Report Type: Spontaneous
  Country: US (occurrence: US)
  Receive Date: 20241216
  Receipt Date: 20241216
  Transmission Date: 20250114
  Serious: Yes (Death, Hospitalization, Other)
  Sender: PURDUE
  Company Number: US-PURDUE PHARMA-USA-2024-0313982

PATIENT
  Sex: Female
  Weight: 45.351 kg

DRUGS (8)
  1. OXYCODONE HYDROCHLORIDE [Suspect]
     Active Substance: OXYCODONE HYDROCHLORIDE
     Indication: Product used for unknown indication
     Dosage: UNK
     Route: 065
  2. DILAUDID [Suspect]
     Active Substance: HYDROMORPHONE HYDROCHLORIDE
     Indication: Product used for unknown indication
     Dosage: UNK
     Route: 048
  3. MORPHINE SULFATE [Suspect]
     Active Substance: MORPHINE SULFATE
     Indication: Product used for unknown indication
     Dosage: UNK
     Route: 065
  4. FENTANYL [Suspect]
     Active Substance: FENTANYL
     Indication: Product used for unknown indication
     Dosage: UNK
     Route: 065
  5. PHENOBARBITAL [Suspect]
     Active Substance: PHENOBARBITAL
     Indication: Cancer pain
     Dosage: 260 MILLIGRAM(3:45 P.M.)
     Route: 065
  6. PHENOBARBITAL [Suspect]
     Active Substance: PHENOBARBITAL
     Dosage: 390 MILLIGRAM(5:26 P.M)
     Route: 065
  7. PHENOBARBITAL [Suspect]
     Active Substance: PHENOBARBITAL
     Dosage: 390 MILLIGRAM(7:47 P.M)
     Route: 065
  8. PHENOBARBITAL [Suspect]
     Active Substance: PHENOBARBITAL
     Dosage: 390 MILLIGRAM(9:54 P.M)
     Route: 065

REACTIONS (9)
  - Death [Fatal]
  - Cardiac arrest [Unknown]
  - Toxicity to various agents [Unknown]
  - Heart rate increased [Unknown]
  - Respiratory rate increased [Unknown]
  - Asphyxia [Unknown]
  - Panic reaction [Unknown]
  - Dyspnoea [Unknown]
  - Sedation [Unknown]
